FAERS Safety Report 12354359 (Version 1)
Quarter: 2016Q2

REPORT INFORMATION
  Report Type: Spontaneous
  Country: US (occurrence: None)
  Receive Date: 20160509
  Receipt Date: 20160509
  Transmission Date: 20160815
  Serious: Yes (Life-Threatening)
  Sender: FDA-Public Use
  Company Number: CN-002353

PATIENT
  Age: 75 Year
  Sex: Female

DRUGS (1)
  1. SONOVUE (SULPHUR HEXAFLUORIDE) [Suspect]
     Active Substance: SULFUR HEXAFLUORIDE
     Indication: BIOPSY LUNG
     Route: 042
     Dates: start: 20160414, end: 20160414

REACTIONS (10)
  - Cardiac arrest [None]
  - Tachycardia [None]
  - Cough [None]
  - Respiratory arrest [None]
  - Oxygen saturation decreased [None]
  - Chills [None]
  - Feeling cold [None]
  - Tachyarrhythmia [None]
  - Seizure [None]
  - Cyanosis [None]

NARRATIVE: CASE EVENT DATE: 20160414
